FAERS Safety Report 5798076-2 (Version None)
Quarter: 2008Q2

REPORT INFORMATION
  Report Type: 
  Country: None (occurrence: None)
  Receive Date: 20080620
  Receipt Date: 20080522
  Transmission Date: 20081010
  Serious: Yes (Other)
  Sender: FDA-Public Use
  Company Number: 14102024

PATIENT

DRUGS (1)
  1. EMSAM [Suspect]
     Dosage: TD

REACTIONS (2)
  - APPLICATION SITE ERYTHEMA [None]
  - CONVULSION [None]
